FAERS Safety Report 10271925 (Version 2)
Quarter: 2014Q3

REPORT INFORMATION
  Report Type: Report from Study
  Country: GB (occurrence: GB)
  Receive Date: 20140702
  Receipt Date: 20140825
  Transmission Date: 20150326
  Serious: Yes (Hospitalization, Other)
  Sender: FDA-Public Use
  Company Number: PHFR2014GB004487

PATIENT
  Age: 58 Year
  Sex: Female
  Weight: 46 kg

DRUGS (5)
  1. AFINITOR [Suspect]
     Active Substance: EVEROLIMUS
     Indication: PANCREATIC NEUROENDOCRINE TUMOUR
     Dosage: 10 MG, UNK
     Dates: start: 20140519, end: 20140616
  2. LANSOPRAZOLE. [Concomitant]
     Active Substance: LANSOPRAZOLE
     Indication: ANTACID THERAPY
  3. ORAMORPH SR SUSTAINED RELEASE [Concomitant]
     Active Substance: MORPHINE SULFATE
     Indication: ANALGESIC THERAPY
     Route: 048
  4. PREGABALIN. [Concomitant]
     Active Substance: PREGABALIN
     Indication: ANALGESIC THERAPY
     Dosage: 25 MG, UNK
  5. DOCUSATE [Concomitant]
     Active Substance: DOCUSATE
     Indication: CONSTIPATION
     Route: 048

REACTIONS (18)
  - Flatulence [Unknown]
  - Polydipsia [Recovered/Resolved]
  - Hypercalcaemia [Unknown]
  - Diarrhoea [Unknown]
  - Dyspnoea [Unknown]
  - Weight decreased [Unknown]
  - Constipation [Unknown]
  - Diabetes mellitus [Recovering/Resolving]
  - Nausea [Recovered/Resolved]
  - Stomatitis [Recovered/Resolved]
  - Night sweats [Unknown]
  - Fatigue [Unknown]
  - Polyuria [Recovered/Resolved]
  - Decreased appetite [Unknown]
  - Abdominal distension [Unknown]
  - Anaemia [Recovering/Resolving]
  - Mouth ulceration [Recovered/Resolved]
  - Pain [Unknown]

NARRATIVE: CASE EVENT DATE: 20140623
